FAERS Safety Report 9324433 (Version 1)
Quarter: 2013Q2

REPORT INFORMATION
  Report Type: Spontaneous
  Country: US (occurrence: US)
  Receive Date: 20130603
  Receipt Date: 20130603
  Transmission Date: 20140414
  Serious: Yes (Other)
  Sender: FDA-Public Use
  Company Number: US-BAYER-2013-066088

PATIENT
  Age: 62 Year
  Sex: Female

DRUGS (9)
  1. DACARBAZINE [Suspect]
     Indication: HODGKIN^S DISEASE
     Dosage: 6 CYCLES
  2. DOXORUBICIN [Suspect]
     Indication: HODGKIN^S DISEASE
     Dosage: 6 CYCLES
  3. DOXORUBICIN [Suspect]
     Indication: DIFFUSE LARGE B-CELL LYMPHOMA
  4. BLEOMYCIN [Suspect]
     Indication: HODGKIN^S DISEASE
     Dosage: 6 CYCLES
  5. VINBLASTINE [Suspect]
     Indication: HODGKIN^S DISEASE
     Dosage: 6 CYCLES
  6. IFOSFAMIDE [Suspect]
     Indication: HODGKIN^S DISEASE RECURRENT
     Dosage: 2 CYCLES
  7. CARBOPLATIN [Suspect]
     Indication: HODGKIN^S DISEASE RECURRENT
     Dosage: 6 CYCLES
  8. ETOPOSIDE [Suspect]
     Indication: HODGKIN^S DISEASE RECURRENT
     Dosage: 6 CYCLES
  9. ETOPOSIDE [Suspect]
     Indication: DIFFUSE LARGE B-CELL LYMPHOMA
     Dosage: TREATMENT OF EVENT

REACTIONS (1)
  - Diffuse large B-cell lymphoma [Recovered/Resolved]
